FAERS Safety Report 9968507 (Version 1)
Quarter: 2014Q1

REPORT INFORMATION
  Report Type: Report from Study
  Country: US (occurrence: US)
  Receive Date: 20140306
  Receipt Date: 20140306
  Transmission Date: 20141002
  Serious: No
  Sender: FDA-Public Use
  Company Number: US-ABBVIE-13P-163-1145572-00

PATIENT
  Age: 57 Year
  Sex: Female

DRUGS (18)
  1. HUMIRA [Suspect]
     Indication: RHEUMATOID ARTHRITIS
     Dosage: 2 INJECTIONS A COUPLE WEEKS AGO
  2. PREDNISONE [Concomitant]
     Indication: RHEUMATOID ARTHRITIS
  3. PENTASA [Concomitant]
     Indication: CROHN^S DISEASE
  4. QUESTRAN [Concomitant]
     Indication: CROHN^S DISEASE
     Dosage: 1-2 PACKETS DAILY
  5. QUESTRAN [Concomitant]
     Indication: BILE ACID MALABSORPTION
  6. LOSARTAN [Concomitant]
     Indication: HYPERTENSION
  7. ZIAC [Concomitant]
     Indication: HYPERTENSION
     Dosage: 5/6.25 MG DAILY
  8. POTASSIUM [Concomitant]
     Indication: BLOOD POTASSIUM DECREASED
     Dosage: 10 MEQ DAILY
  9. ALLOPURINOL [Concomitant]
     Indication: GOUT
     Dosage: 300 MG DAILY
  10. VITAMIN B 12 [Concomitant]
     Indication: VITAMIN B12 DECREASED
     Route: 050
  11. NEXIUM [Concomitant]
     Indication: GASTROOESOPHAGEAL REFLUX DISEASE
     Dosage: 40 MG DAILY
  12. SINGULAIR [Concomitant]
     Indication: HYPERSENSITIVITY
     Dosage: 10 MG DAILY
  13. SYNTHROID [Concomitant]
     Indication: BASEDOW^S DISEASE
     Dosage: 200 MCG DAILY
  14. TRAMADOL [Concomitant]
     Indication: PAIN
     Dosage: 1-2 TABLETS 3 TIMES DAILY AS NEEDED
  15. ROPINIROLE [Concomitant]
     Indication: RESTLESS LEGS SYNDROME
  16. ASPIRIN [Concomitant]
     Indication: FAMILIAL RISK FACTOR
     Dosage: 81 MG DAILY
  17. MOBIC [Concomitant]
     Indication: PRODUCT USED FOR UNKNOWN INDICATION
     Dosage: 15 MG DAILY
  18. EPI SHOT [Concomitant]
     Indication: DRUG HYPERSENSITIVITY
     Route: 050

REACTIONS (1)
  - Crohn^s disease [Unknown]
